FAERS Safety Report 9160123 (Version 1)
Quarter: 2013Q1

REPORT INFORMATION
  Report Type: Spontaneous
  Country: US (occurrence: None)
  Receive Date: 20130220
  Receipt Date: 20130220
  Transmission Date: 20140127
  Serious: Yes (Other)
  Sender: FDA-Public Use
  Company Number: 1211-714

PATIENT
  Sex: 0

DRUGS (1)
  1. EYLEA (ALFIBERCEPT)(AFLIBERCEPT) [Suspect]

REACTIONS (3)
  - Endophthalmitis [None]
  - Blindness [None]
  - Streptococcus test positive [None]
